FAERS Safety Report 7690780-4 (Version None)
Quarter: 2011Q3

REPORT INFORMATION
  Report Type: 
  Country: None (occurrence: None)
  Receive Date: 20110816
  Receipt Date: 20110816
  Transmission Date: 20111222
  Serious: Yes (Other)
  Sender: FDA-Public Use
  Company Number: None

PATIENT

DRUGS (2)
  1. LAMICTAL [Suspect]
     Indication: ENCEPHALOPATHY
     Dosage: 3 QD PO
     Route: 048
     Dates: start: 20070227
  2. LAMICTAL [Suspect]
     Indication: EPILEPSY
     Dosage: 3 QD PO
     Route: 048
     Dates: start: 20070227

REACTIONS (2)
  - PRODUCT SUBSTITUTION ISSUE [None]
  - CONVULSION [None]
